FAERS Safety Report 9617003 (Version 1)
Quarter: 2013Q4

REPORT INFORMATION
  Report Type: Spontaneous
  Country: US (occurrence: US)
  Receive Date: 20131011
  Receipt Date: 20131011
  Transmission Date: 20140711
  Serious: No
  Sender: FDA-Public Use
  Company Number: US-PURDUE-USA-2013-0097755

PATIENT
  Sex: Male

DRUGS (2)
  1. BUTRANS [Suspect]
     Indication: NEURALGIA
     Dosage: 5 MCG, 1/WEEK
     Route: 062
     Dates: start: 2012
  2. BUTRANS [Suspect]
     Dosage: 10 MCG, 1/WEEK
     Route: 062
     Dates: start: 20121220

REACTIONS (4)
  - Drug withdrawal syndrome [Recovered/Resolved]
  - Drug ineffective [Recovered/Resolved]
  - Drug effect decreased [Not Recovered/Not Resolved]
  - Nausea [Not Recovered/Not Resolved]
